FAERS Safety Report 9880461 (Version 1)
Quarter: 2014Q1

REPORT INFORMATION
  Report Type: Spontaneous
  Country: US (occurrence: None)
  Receive Date: 20140206
  Receipt Date: 20140206
  Transmission Date: 20141002
  Serious: Yes (Other)
  Sender: FDA-Public Use
  Company Number: None

PATIENT
  Age: 62 Year
  Sex: Male
  Weight: 95.26 kg

DRUGS (1)
  1. TAMSULOSIN HCL [Suspect]
     Indication: BENIGN PROSTATIC HYPERPLASIA
     Dosage: 0.4 MG CAPSULE?1 CAPSULE?1/DAY AT BEDTIME?BY MOUTH
     Route: 048
     Dates: start: 20130330, end: 20140126

REACTIONS (5)
  - Rhinorrhoea [None]
  - Dyspnoea [None]
  - Headache [None]
  - Rash [None]
  - Pharyngeal oedema [None]
